FAERS Safety Report 19278648 (Version 2)
Quarter: 2021Q2

REPORT INFORMATION
  Report Type: Report from Study
  Country: US (occurrence: US)
  Receive Date: 20210520
  Receipt Date: 20210529
  Transmission Date: 20210717
  Serious: Yes (Hospitalization, Other)
  Sender: FDA-Public Use
  Company Number: US-JNJFOC-20210525139

PATIENT
  Age: 58 Year
  Sex: Female
  Weight: 47.3 kg

DRUGS (3)
  1. VELETRI [Suspect]
     Active Substance: EPOPROSTENOL
     Indication: PULMONARY ARTERIAL HYPERTENSION
     Dosage: VELETRI 0.5 MG VIAL INTRAVENOUS CONTINUOUS
     Route: 042
  2. ADCIRCA [Concomitant]
     Active Substance: TADALAFIL
  3. OPSUMIT [Suspect]
     Active Substance: MACITENTAN
     Indication: PULMONARY ARTERIAL HYPERTENSION
     Route: 048

REACTIONS (3)
  - Liver transplant [Unknown]
  - Pyrexia [Unknown]
  - Device related infection [Unknown]

NARRATIVE: CASE EVENT DATE: 20210507
